FAERS Safety Report 9937183 (Version 2)
Quarter: 2014Q1

REPORT INFORMATION
  Report Type: Spontaneous
  Country: US (occurrence: US)
  Receive Date: 20140301
  Receipt Date: 20140312
  Transmission Date: 20141002
  Serious: No
  Sender: FDA-Public Use
  Company Number: US-009507513-1402USA010788

PATIENT
  Sex: Female

DRUGS (1)
  1. IMPLANON [Suspect]
     Indication: CONTRACEPTION
     Dosage: 1 ROD, EVERY 3 YEARS
     Route: 059
     Dates: start: 201005

REACTIONS (4)
  - Device dislocation [Unknown]
  - Weight increased [Unknown]
  - Device difficult to use [Unknown]
  - Medical device complication [Unknown]
